FAERS Safety Report 5145301-7 (Version None)
Quarter: 2006Q4

REPORT INFORMATION
  Report Type: 
  Country: None (occurrence: None)
  Receive Date: 20061101
  Receipt Date: 20061017
  Transmission Date: 20070319
  Serious: Yes (Other)
  Sender: FDA-Public Use
  Company Number: PHBS2006BE10701

PATIENT
  Age: 83 Year
  Sex: Female

DRUGS (4)
  1. VISUDYNE [Suspect]
     Indication: MACULAR DEGENERATION
     Dates: start: 20060713, end: 20060713
  2. ELTHYRONE [Concomitant]
  3. ZOLPIDEM TARTRATE [Concomitant]
  4. BEFACT [Concomitant]

REACTIONS (8)
  - INJECTION SITE DISCOLOURATION [None]
  - INJECTION SITE ERYTHEMA [None]
  - INJECTION SITE NECROSIS [None]
  - INJECTION SITE PAIN [None]
  - INJECTION SITE SWELLING [None]
  - OEDEMA PERIPHERAL [None]
  - SCAB [None]
  - SKIN LESION [None]
